FAERS Safety Report 5130801-6 (Version None)
Quarter: 2006Q4

REPORT INFORMATION
  Report Type: 
  Country: None (occurrence: None)
  Receive Date: 20061019
  Receipt Date: 20060831
  Transmission Date: 20070319
  Serious: Yes (Hospitalization, Other)
  Sender: FDA-Public Use
  Company Number: US-BAYER-200613717BCC

PATIENT
  Age: 75 Year
  Sex: Female
  Weight: 53 kg

DRUGS (7)
  1. ASPIRIN [Suspect]
     Indication: DRUG USE FOR UNKNOWN INDICATION
     Dosage: TOTAL DAILY DOSE: 325 MG  UNIT DOSE: 325 MG
     Route: 048
  2. CAPTOPRIL [Concomitant]
     Dosage: TOTAL DAILY DOSE: 25 MG
  3. AVANDIA [Concomitant]
     Dosage: TOTAL DAILY DOSE: 8 MG
  4. PREVACID [Concomitant]
     Dosage: TOTAL DAILY DOSE: 30 MG
  5. WELCHOL [Concomitant]
     Dosage: TOTAL DAILY DOSE: 50 MG
  6. FUROSEMIDE [Concomitant]
     Dosage: TOTAL DAILY DOSE: 40 MG
  7. MULTI-VITAMIN [Concomitant]

REACTIONS (4)
  - ASTHENIA [None]
  - CAROTID ARTERY STENOSIS [None]
  - CORONARY ARTERY OCCLUSION [None]
  - PAIN IN EXTREMITY [None]
